FAERS Safety Report 5290367-7 (Version None)
Quarter: 2007Q2

REPORT INFORMATION
  Report Type: 
  Country: None (occurrence: None)
  Receive Date: 20070409
  Receipt Date: 20070326
  Transmission Date: 20071010
  Serious: Yes (Other)
  Sender: FDA-Public Use
  Company Number: PHNU2007DE01328

PATIENT
  Age: 74 Year
  Sex: Male

DRUGS (2)
  1. SIRDALUD [Suspect]
     Indication: MUSCLE SPASTICITY
     Dosage: 2 MG/DAY
     Route: 048
     Dates: end: 20070201
  2. LIORESAL [Suspect]
     Dosage: 50 MG/DAY
     Route: 048
     Dates: end: 20070201

REACTIONS (2)
  - CIRCULATORY COLLAPSE [None]
  - MUSCULAR WEAKNESS [None]
